FAERS Safety Report 7220541-1 (Version None)
Quarter: 2011Q1

REPORT INFORMATION
  Report Type: 
  Country: None (occurrence: None)
  Receive Date: 20110111
  Receipt Date: 20101228
  Transmission Date: 20110831
  Serious: Yes (Other)
  Sender: FDA-Public Use
  Company Number: HR-PFIZER INC-2011005597

PATIENT
  Age: 74 Year
  Sex: Male

DRUGS (14)
  1. AZITHROMYCIN [Interacting]
     Indication: PRODUCT USED FOR UNKNOWN INDICATION
     Dosage: UNK
     Dates: start: 20101001, end: 20101001
  2. ASPIRIN [Interacting]
     Indication: ATRIAL FIBRILLATION
     Dosage: 100 MG, 1X/DAY
     Route: 048
     Dates: start: 20050101, end: 20101101
  3. ATACAND HCT [Suspect]
     Indication: PRODUCT USED FOR UNKNOWN INDICATION
     Dosage: DAILY
     Route: 048
     Dates: start: 20080101, end: 20101101
  4. NOVOCEF [Interacting]
     Indication: PNEUMONIA
     Dosage: 250 MG, 2X/DAY
     Route: 048
     Dates: start: 20101030, end: 20101108
  5. AMOXICILLIN AND CLAVULANATE POTASSIUM [Suspect]
     Indication: PRODUCT USED FOR UNKNOWN INDICATION
     Dosage: UNK
     Dates: start: 20101001, end: 20101001
  6. WARFARIN SODIUM [Interacting]
     Dosage: UNK
     Dates: start: 20101025, end: 20101101
  7. CORDARONE [Interacting]
     Indication: ATRIAL FIBRILLATION
     Dosage: 200 MG, 2X/DAY
     Route: 048
     Dates: start: 20101025, end: 20101103
  8. ALLOPURINOL [Interacting]
     Indication: GOUT
     Dosage: 100 MG, 1X/DAY
     Route: 048
     Dates: start: 20080101
  9. NOVOMIX [Concomitant]
     Dosage: UNK
     Dates: start: 20101025
  10. FUROSEMIDE [Suspect]
     Indication: RENAL FAILURE CHRONIC
     Dosage: 40 MG, UNK
     Route: 048
     Dates: start: 20070101, end: 20101101
  11. AMLODIPINE BESILATE [Concomitant]
     Dosage: UNK
     Dates: start: 20010101
  12. MOXONIDINE [Concomitant]
     Dosage: UNK
     Dates: start: 20080101
  13. ENOXAPARIN SODIUM [Suspect]
     Indication: ATRIAL FIBRILLATION
     Dosage: 0.4 ML, UNK
     Route: 042
     Dates: start: 20101020, end: 20101108
  14. CONCOR [Interacting]
     Indication: HYPERTENSION
     Dosage: 5 MG, 1X/DAY
     Route: 048
     Dates: start: 20010101

REACTIONS (6)
  - LEUKOPENIA [None]
  - PROTHROMBIN TIME SHORTENED [None]
  - RENAL FAILURE [None]
  - DRUG INTERACTION [None]
  - OLIGURIA [None]
  - BLOOD CREATININE INCREASED [None]
